FAERS Safety Report 5290730-4 (Version None)
Quarter: 2007Q2

REPORT INFORMATION
  Report Type: 
  Country: None (occurrence: None)
  Receive Date: 20070409
  Receipt Date: 20070329
  Transmission Date: 20071010
  Serious: Yes (Other)
  Sender: FDA-Public Use
  Company Number: PHBS2006KR14557

PATIENT
  Age: 59 Year
  Sex: Female

DRUGS (1)
  1. GLEEVEC [Suspect]
     Indication: CHRONIC MYELOID LEUKAEMIA
     Dosage: 400 MG/D
     Route: 048
     Dates: start: 20020522

REACTIONS (5)
  - DYSPEPSIA [None]
  - FATIGUE [None]
  - OEDEMA [None]
  - PHARYNGEAL OEDEMA [None]
  - THYROID CANCER [None]
